FAERS Safety Report 22522536 (Version 1)
Quarter: 2023Q2

REPORT INFORMATION
  Report Type: Report from Study
  Country: ES (occurrence: ES)
  Receive Date: 20230605
  Receipt Date: 20230605
  Transmission Date: 20230722
  Serious: Yes (Hospitalization)
  Sender: FDA-Public Use
  Company Number: ES-002147023-NVSC2023ES108041

PATIENT
  Age: 79 Year
  Sex: Female
  Weight: 62.8 kg

DRUGS (2)
  1. NIVOLUMAB [Suspect]
     Active Substance: NIVOLUMAB
     Indication: Neuroendocrine carcinoma
     Dosage: 240 MG
     Route: 042
     Dates: start: 20221228
  2. LUTATHERA [Suspect]
     Active Substance: LUTETIUM OXODOTREOTIDE LU-177
     Indication: Neuroendocrine carcinoma
     Dosage: 200 MCI
     Route: 042
     Dates: start: 20230111

REACTIONS (2)
  - Immune-mediated enterocolitis [Recovered/Resolved]
  - Respiratory tract infection [Recovered/Resolved]

NARRATIVE: CASE EVENT DATE: 20230428
